FAERS Safety Report 11813616 (Version 1)
Quarter: 2015Q4

REPORT INFORMATION
  Report Type: Spontaneous
  Country: CA (occurrence: CA)
  Receive Date: 20151209
  Receipt Date: 20151209
  Transmission Date: 20160305
  Serious: Yes (Other)
  Sender: FDA-Public Use
  Company Number: CA-TEVA-613825ACC

PATIENT
  Age: 75 Year
  Sex: Female
  Weight: 60 kg

DRUGS (12)
  1. ALLOPURINOL. [Concomitant]
     Active Substance: ALLOPURINOL
  2. ATENOLOL TABLETS, BP [Concomitant]
     Active Substance: ATENOLOL
  3. EZETROL [Concomitant]
     Active Substance: EZETIMIBE
  4. HCTZ [Concomitant]
     Active Substance: HYDROCHLOROTHIAZIDE
  5. ASA [Concomitant]
     Active Substance: ASPIRIN
  6. IRBESARTAN - TEVA [Suspect]
     Active Substance: IRBESARTAN
     Indication: HYPERTENSION
     Route: 048
  7. BETADERM [Concomitant]
     Active Substance: BETAMETHASONE VALERATE
  8. FELODIPINE SANDOZ [Concomitant]
     Active Substance: FELODIPINE
  9. COLACE [Concomitant]
     Active Substance: DOCUSATE SODIUM
  10. DOMPERIDONE [Concomitant]
     Active Substance: DOMPERIDONE
  11. PANTOPRAZOLE [Concomitant]
     Active Substance: PANTOPRAZOLE SODIUM
  12. RAMIPRIL. [Concomitant]
     Active Substance: RAMIPRIL

REACTIONS (3)
  - Dizziness [Recovered/Resolved]
  - Malaise [Recovered/Resolved]
  - Nausea [Recovered/Resolved]
